FAERS Safety Report 24019529 (Version 2)
Quarter: 2024Q3

REPORT INFORMATION
  Report Type: Spontaneous
  Country: US (occurrence: US)
  Receive Date: 20240627
  Receipt Date: 20240705
  Transmission Date: 20241016
  Serious: No
  Sender: ROCHE
  Company Number: US-ROCHE-10000000294

PATIENT
  Age: 76 Year
  Sex: Female

DRUGS (3)
  1. ACTEMRA [Suspect]
     Active Substance: TOCILIZUMAB
     Indication: Rheumatoid arthritis
     Route: 058
     Dates: start: 2024
  2. LISINOPRIL [Concomitant]
     Active Substance: LISINOPRIL
     Route: 065
  3. ENBREL [Concomitant]
     Active Substance: BENZYL ALCOHOL\ETANERCEPT

REACTIONS (5)
  - Visual impairment [Unknown]
  - Needle issue [Unknown]
  - Device difficult to use [Unknown]
  - Wrong technique in product usage process [Unknown]
  - Ill-defined disorder [Unknown]

NARRATIVE: CASE EVENT DATE: 20240101
